FAERS Safety Report 9543681 (Version 1)
Quarter: 2013Q3

REPORT INFORMATION
  Report Type: Spontaneous
  Country: GB (occurrence: GB)
  Receive Date: 20130923
  Receipt Date: 20130923
  Transmission Date: 20140515
  Serious: Yes (Life-Threatening, Hospitalization)
  Sender: FDA-Public Use
  Company Number: GB-TEVA-434061USA

PATIENT
  Age: 64 Year
  Sex: Male
  Weight: 88 kg

DRUGS (7)
  1. BENDAMUSTINE [Suspect]
     Indication: CHRONIC LYMPHOCYTIC LEUKAEMIA
     Dates: start: 201212, end: 201301
  2. BENDAMUSTINE [Suspect]
     Dates: start: 201307
  3. ACICLOVIR [Concomitant]
  4. CO-TRIMOXAZOLE [Concomitant]
  5. DEXAMETHASONE [Concomitant]
  6. LANSOPRAZOLE [Concomitant]
  7. PARACETAMOL [Concomitant]

REACTIONS (4)
  - Serum ferritin increased [Unknown]
  - Histiocytosis haematophagic [Not Recovered/Not Resolved]
  - Pyrexia [Unknown]
  - Malaise [Unknown]
